FAERS Safety Report 5147943-1 (Version None)
Quarter: 2006Q4

REPORT INFORMATION
  Report Type: 
  Country: None (occurrence: None)
  Receive Date: 20061110
  Receipt Date: 20061106
  Transmission Date: 20070319
  Serious: Yes (Hospitalization)
  Sender: FDA-Public Use
  Company Number: ES-BAYER-200615681GDS

PATIENT
  Age: 60 Year
  Sex: Male

DRUGS (3)
  1. CIPROFLOXACIN [Suspect]
     Indication: UNEVALUABLE EVENT
     Route: 065
  2. IRINOTECAN HCL [Suspect]
     Indication: CHEMOTHERAPY
     Route: 065
  3. FLUOROURACIL [Suspect]
     Indication: CHEMOTHERAPY
     Route: 065

REACTIONS (5)
  - DIARRHOEA [None]
  - MULTI-ORGAN FAILURE [None]
  - RENAL IMPAIRMENT [None]
  - STEVENS-JOHNSON SYNDROME [None]
  - TOXIC EPIDERMAL NECROLYSIS [None]
